FAERS Safety Report 20518387 (Version 2)
Quarter: 2022Q2

REPORT INFORMATION
  Report Type: Spontaneous
  Country: US (occurrence: US)
  Receive Date: 20220225
  Receipt Date: 20220407
  Transmission Date: 20220721
  Serious: No
  Sender: FDA-Public Use
  Company Number: US-SA-SAC20220221001487

PATIENT
  Sex: Male

DRUGS (1)
  1. DUPIXENT [Suspect]
     Active Substance: DUPILUMAB
     Indication: Asthma
     Dosage: 300 MG, QOW
     Route: 058
     Dates: start: 202202

REACTIONS (6)
  - Abdominal distension [Recovered/Resolved]
  - Throat irritation [Unknown]
  - Cough [Unknown]
  - Vision blurred [Unknown]
  - Dry throat [Unknown]
  - Product use issue [Unknown]
